FAERS Safety Report 8604929-X (Version None)
Quarter: 2012Q3

REPORT INFORMATION
  Report Type: 
  Country: None (occurrence: None)
  Receive Date: 20120820
  Receipt Date: 20120807
  Transmission Date: 20120928
  Serious: Yes (Hospitalization)
  Sender: FDA-Public Use
  Company Number: CN-NOVOPROD-357701

PATIENT
  Age: 60 Year
  Sex: Female
  Weight: 50 kg

DRUGS (5)
  1. NOVOLIN R [Concomitant]
     Dosage: 16 IU EVENING
  2. NOVOLIN N [Suspect]
     Indication: TYPE 2 DIABETES MELLITUS
     Dosage: 16IU IN THE MORNING
     Route: 065
  3. METFORMIN HCL [Concomitant]
     Indication: TYPE 2 DIABETES MELLITUS
     Dosage: 500 MG, QD
     Route: 048
     Dates: start: 20020101
  4. NOVOLIN R [Concomitant]
     Indication: TYPE 2 DIABETES MELLITUS
     Dosage: 16 IU MORNING AND 16 IU EVENING
     Dates: start: 20070101
  5. NOVOLIN R [Concomitant]
     Dosage: 20 IU MORNING AND 18 IU EVENING

REACTIONS (1)
  - INJECTION SITE INFECTION [None]
